FAERS Safety Report 10046071 (Version 1)
Quarter: 2014Q1

REPORT INFORMATION
  Report Type: Spontaneous
  Country: FR (occurrence: FR)
  Receive Date: 20140331
  Receipt Date: 20140331
  Transmission Date: 20141002
  Serious: Yes (Hospitalization)
  Sender: FDA-Public Use
  Company Number: FR-ORION CORPORATION ORION PHARMA-ENTC2014-0111

PATIENT
  Age: 65 Year
  Sex: Female

DRUGS (3)
  1. STALEVO [Suspect]
     Indication: PARKINSONISM
     Dosage: STRENGTH: 100/25/200 MG
     Route: 048
     Dates: start: 20120515, end: 20140210
  2. REQUIP LP [Suspect]
     Indication: PARKINSONISM
     Route: 048
     Dates: start: 20120515, end: 20140210
  3. AZILECT [Suspect]
     Indication: PARKINSONISM
     Route: 048
     Dates: start: 20120515, end: 20140210

REACTIONS (3)
  - Incoherent [Recovered/Resolved with Sequelae]
  - Mania [Recovered/Resolved]
  - Confusional state [Recovered/Resolved with Sequelae]
